FAERS Safety Report 13867272 (Version 1)
Quarter: 2017Q3

REPORT INFORMATION
  Report Type: Spontaneous
  Country: US (occurrence: None)
  Receive Date: 20170814
  Receipt Date: 20170814
  Transmission Date: 20171127
  Serious: Yes (Death)
  Sender: FDA-Public Use
  Company Number: None

PATIENT
  Age: 19 Year
  Sex: Female

DRUGS (1)
  1. NEXAVAR [Suspect]
     Active Substance: SORAFENIB
     Indication: BONE CANCER
     Route: 048
     Dates: start: 20170622, end: 20170805

REACTIONS (1)
  - Death [None]

NARRATIVE: CASE EVENT DATE: 20170805
